FAERS Safety Report 6680461-8 (Version None)
Quarter: 2010Q2

REPORT INFORMATION
  Report Type: 
  Country: None (occurrence: None)
  Receive Date: 20100414
  Receipt Date: 20100406
  Transmission Date: 20101027
  Serious: Yes (Hospitalization, Other)
  Sender: FDA-Public Use
  Company Number: US-BIOGENIDEC-2010BI011184

PATIENT
  Age: 39 Year
  Sex: Female
  Weight: 49 kg

DRUGS (1)
  1. AVONEX [Suspect]
     Indication: MULTIPLE SCLEROSIS
     Route: 030
     Dates: start: 20090904

REACTIONS (11)
  - AMNESIA [None]
  - CONVULSION [None]
  - ENDOTRACHEAL INTUBATION [None]
  - ENDOTRACHEAL INTUBATION COMPLICATION [None]
  - FATIGUE [None]
  - MEMORY IMPAIRMENT [None]
  - MENTAL STATUS CHANGES [None]
  - OVERDOSE [None]
  - SUICIDE ATTEMPT [None]
  - THROAT IRRITATION [None]
  - WEIGHT DECREASED [None]
